FAERS Safety Report 5445364-5 (Version None)
Quarter: 2007Q3

REPORT INFORMATION
  Report Type: 
  Country: None (occurrence: None)
  Receive Date: 20070731
  Receipt Date: 20070623
  Transmission Date: 20080115
  Serious: No
  Sender: FDA-Public Use
  Company Number: US200706004238

PATIENT
  Age: 66 Year
  Sex: Male
  Weight: 105.7 kg

DRUGS (9)
  1. BYETTA [Suspect]
     Indication: TYPE 2 DIABETES MELLITUS
     Dosage: 5 UG, 2/D, SUBCUTANEOUS
     Route: 058
     Dates: start: 20070503, end: 20070601
  2. BYETTA [Suspect]
     Dosage: 10 UG, 2/D,  SUBCUTANEOUS
     Route: 058
     Dates: start: 20070601, end: 20070616
  3. BYETTA [Suspect]
     Dosage: 10 UG, 2/D,  SUBCUTANEOUS
     Route: 058
     Dates: start: 20070601
  4. ACTOS [Concomitant]
  5. GLYBURIDE [Concomitant]
  6. GLUCOPHAGE [Concomitant]
  7. VASOTEC [Concomitant]
  8. DRUG USED IN DIABETES [Concomitant]
  9. VYTORIN [Concomitant]

REACTIONS (8)
  - ABDOMINAL PAIN UPPER [None]
  - BLOOD GLUCOSE INCREASED [None]
  - DISORIENTATION [None]
  - DIZZINESS [None]
  - FEELING JITTERY [None]
  - NAUSEA [None]
  - VISION BLURRED [None]
  - WEIGHT DECREASED [None]
